FAERS Safety Report 12169301 (Version 1)
Quarter: 2016Q1

REPORT INFORMATION
  Report Type: Spontaneous
  Country: US (occurrence: US)
  Receive Date: 20160310
  Receipt Date: 20160310
  Transmission Date: 20160526
  Serious: Yes (Other)
  Sender: FDA-Public Use
  Company Number: US-BAYER-2016-042840

PATIENT
  Age: 69 Year
  Sex: Female
  Weight: 56.24 kg

DRUGS (5)
  1. BAYER LOW DOSE [Suspect]
     Active Substance: ASPIRIN
     Indication: ISCHAEMIC HEART DISEASE PROPHYLAXIS
     Dosage: UNK, QD
  2. FISH OIL [Concomitant]
     Active Substance: FISH OIL
  3. CENTRUM [MINERALS NOS,VITAMINS NOS] [Concomitant]
  4. CALCIUM [Concomitant]
     Active Substance: CALCIUM
  5. MIRALAX [Suspect]
     Active Substance: POLYETHYLENE GLYCOL 3350
     Indication: CONSTIPATION
     Dosage: 2 DF, QD
     Route: 048
     Dates: start: 2011

REACTIONS (3)
  - Product use issue [None]
  - Product use issue [None]
  - Diverticulitis [Not Recovered/Not Resolved]

NARRATIVE: CASE EVENT DATE: 2011
